FAERS Safety Report 10168034 (Version 2)
Quarter: 2014Q2

REPORT INFORMATION
  Report Type: Report from Study
  Country: FR (occurrence: FR)
  Receive Date: 20140512
  Receipt Date: 20140512
  Transmission Date: 20141212
  Serious: No
  Sender: FDA-Public Use
  Company Number: PHHY2014FR012475

PATIENT
  Age: 64 Year
  Sex: Female

DRUGS (2)
  1. LDK378 [Suspect]
     Indication: NON-SMALL CELL LUNG CANCER METASTATIC
     Dosage: 450 MG, DAILY
     Route: 048
     Dates: start: 20140218
  2. LDK378 [Suspect]
     Indication: ANAPLASTIC LYMPHOMA KINASE GENE MUTATION

REACTIONS (1)
  - Phlebitis [Unknown]
